FAERS Safety Report 16779130 (Version 3)
Quarter: 2020Q2

REPORT INFORMATION
  Report Type: Spontaneous
  Country: US (occurrence: US)
  Receive Date: 20190906
  Receipt Date: 20200530
  Transmission Date: 20200713
  Serious: No
  Sender: FDA-Public Use
  Company Number: US-TEVA-2019-US-1103000

PATIENT
  Age: 10 Year
  Sex: Male

DRUGS (2)
  1. CLONIDINE ER [Suspect]
     Active Substance: CLONIDINE
     Indication: POST-TRAUMATIC STRESS DISORDER
     Route: 065
     Dates: start: 201909, end: 201909
  2. CLONIDINE ER [Suspect]
     Active Substance: CLONIDINE
     Indication: ATTENTION DEFICIT HYPERACTIVITY DISORDER
     Route: 065
     Dates: start: 20190828

REACTIONS (5)
  - Abnormal sleep-related event [Recovered/Resolved]
  - Agitation [Not Recovered/Not Resolved]
  - Nightmare [Unknown]
  - Sleep terror [Recovered/Resolved]
  - Abnormal behaviour [Recovered/Resolved]

NARRATIVE: CASE EVENT DATE: 20190828
